FAERS Safety Report 19706775 (Version 1)
Quarter: 2021Q3

REPORT INFORMATION
  Report Type: Spontaneous
  Country: DE (occurrence: DE)
  Receive Date: 20210817
  Receipt Date: 20210817
  Transmission Date: 20211014
  Serious: Yes (Hospitalization, Other)
  Sender: FDA-Public Use
  Company Number: DE-TEVA-2021-DE-1941786

PATIENT
  Age: 77 Year
  Sex: Male
  Weight: 82 kg

DRUGS (11)
  1. METFORMIN [Suspect]
     Active Substance: METFORMIN HYDROCHLORIDE
     Dosage: 1000 MILLIGRAM DAILY; 1?0?1?0
     Route: 065
  2. TAMSULOSIN [Concomitant]
     Active Substance: TAMSULOSIN
     Dosage: .4 MILLIGRAM DAILY;  0?0?1?0
  3. PHENPROCOUMON [Concomitant]
     Active Substance: PHENPROCOUMON
     Dosage: 3 MG, SCHEMA
  4. NALOXONE W/OXYCODONE [Concomitant]
     Active Substance: NALOXONE HYDROCHLORIDE\OXYCODONE HYDROCHLORIDE
     Dosage: 1 DOSAGE FORMS DAILY; 10|20 MG, 0?0?1?0
  5. PANKREASPULVER VOM SCHWEIN [Concomitant]
     Dosage: 75000 IU (INTERNATIONAL UNIT) DAILY; 25,000 IU, 1?1?1?0
  6. LEVOTHYROXINE?NATRIUM [Concomitant]
     Dosage: 1 DOSAGE FORMS DAILY; 100|100 MG, 1?0?0?0
  7. ROSUVASTATIN. [Concomitant]
     Active Substance: ROSUVASTATIN
     Dosage: 5 MILLIGRAM DAILY; 0?0?1?0
  8. INSULIN GLARGIN [Suspect]
     Active Substance: INSULIN GLARGINE
     Dosage: 28 DOSAGE FORMS DAILY; 28 IU, 28?0?0?0
     Route: 065
  9. PANTOPRAZOL [Concomitant]
     Active Substance: PANTOPRAZOLE SODIUM
     Dosage: 40 MILLIGRAM DAILY; 1?0?0?0
  10. COLECALCIFEROL (VITAMIN D) [Concomitant]
     Active Substance: CHOLECALCIFEROL
     Dosage: 20000 IU, SCHEME
  11. PREGABALIN. [Concomitant]
     Active Substance: PREGABALIN
     Dosage: 300 MILLIGRAM DAILY; 1?0?1?0

REACTIONS (5)
  - Dizziness [Unknown]
  - Renal impairment [Unknown]
  - Hyperglycaemia [Unknown]
  - Hypotension [Unknown]
  - General physical health deterioration [Unknown]
